FAERS Safety Report 15298446 (Version 1)
Quarter: 2018Q3

REPORT INFORMATION
  Report Type: Spontaneous
  Country: US (occurrence: US)
  Receive Date: 20180820
  Receipt Date: 20180820
  Transmission Date: 20181010
  Serious: Yes (Other)
  Sender: FDA-Public Use
  Company Number: US-JAZZ-2014-US-005890

PATIENT
  Sex: Female

DRUGS (50)
  1. PILOCARPINE HCL [Concomitant]
     Active Substance: PILOCARPINE HYDROCHLORIDE
  2. OLOPATADINE. [Concomitant]
     Active Substance: OLOPATADINE
  3. PROPRANOLOL [Concomitant]
     Active Substance: PROPRANOLOL HYDROCHLORIDE
  4. MOMETASONE FUROATE. [Concomitant]
     Active Substance: MOMETASONE FUROATE
  5. CODEINE SULFATE. [Concomitant]
     Active Substance: CODEINE SULFATE
  6. PROPOFOL. [Concomitant]
     Active Substance: PROPOFOL
  7. AZASITE [Concomitant]
     Active Substance: AZITHROMYCIN MONOHYDRATE
  8. HUMIRA [Concomitant]
     Active Substance: ADALIMUMAB
  9. ADVAIR HFA [Concomitant]
     Active Substance: FLUTICASONE PROPIONATE\SALMETEROL XINAFOATE
  10. LIDOCAINE. [Concomitant]
     Active Substance: LIDOCAINE
  11. PREVACID [Concomitant]
     Active Substance: LANSOPRAZOLE
  12. SYNTHROID [Concomitant]
     Active Substance: LEVOTHYROXINE SODIUM
  13. SINGULAIR [Concomitant]
     Active Substance: MONTELUKAST SODIUM
  14. TRAMADOL HYDROCHLORIDE. [Concomitant]
     Active Substance: TRAMADOL HYDROCHLORIDE
  15. LIOTHYRONINE SODIUM. [Concomitant]
     Active Substance: LIOTHYRONINE SODIUM
  16. FAMOTIDINE. [Concomitant]
     Active Substance: FAMOTIDINE
  17. HYALGAN [Concomitant]
     Active Substance: HYALURONATE SODIUM
  18. AZITHROMYCIN ANHYDROUS. [Concomitant]
     Active Substance: AZITHROMYCIN ANHYDROUS
  19. FOLIC ACID. [Concomitant]
     Active Substance: FOLIC ACID
  20. XYREM [Suspect]
     Active Substance: SODIUM OXYBATE
     Dosage: 2 G, FIRST DOSE
     Route: 048
     Dates: start: 201404, end: 201404
  21. XYREM [Suspect]
     Active Substance: SODIUM OXYBATE
     Dosage: 1 G, SECOND DOSE
     Route: 048
     Dates: start: 2014, end: 2014
  22. ZITHROMAX [Concomitant]
     Active Substance: AZITHROMYCIN DIHYDRATE
  23. PROLIA [Concomitant]
     Active Substance: DENOSUMAB
  24. CALCIUM [Concomitant]
     Active Substance: CALCIUM
  25. DICLOFENAC [Concomitant]
     Active Substance: DICLOFENAC
  26. XYREM [Suspect]
     Active Substance: SODIUM OXYBATE
     Indication: SLEEP DISORDER
     Dosage: 2.25 G, BID
     Route: 048
     Dates: start: 201401, end: 2014
  27. XYREM [Suspect]
     Active Substance: SODIUM OXYBATE
     Dosage: 2 G, FIRST DOSE
     Route: 048
     Dates: start: 201404, end: 201404
  28. XYREM [Suspect]
     Active Substance: SODIUM OXYBATE
     Dosage: 1.5 G, SECOND DOSE
     Route: 048
     Dates: start: 2014
  29. MAGNESIUM OXIDE. [Concomitant]
     Active Substance: MAGNESIUM OXIDE
  30. DICLOFENAC SODIUM. [Concomitant]
     Active Substance: DICLOFENAC SODIUM
  31. FLUCONAZOLE. [Concomitant]
     Active Substance: FLUCONAZOLE
  32. XYREM [Suspect]
     Active Substance: SODIUM OXYBATE
     Dosage: 1.25 G, SECOND DOSE
     Route: 048
     Dates: start: 2014, end: 2014
  33. XYREM [Suspect]
     Active Substance: SODIUM OXYBATE
     Dosage: 2 G, FIRST DOSE
     Route: 048
     Dates: start: 2014
  34. PROAIR HFA [Concomitant]
     Active Substance: ALBUTEROL SULFATE
  35. PHENOBARBITAL. [Concomitant]
     Active Substance: PHENOBARBITAL
  36. NABUMETONE. [Concomitant]
     Active Substance: NABUMETONE
  37. CYTOMEL [Concomitant]
     Active Substance: LIOTHYRONINE SODIUM
  38. DESONIDE. [Concomitant]
     Active Substance: DESONIDE
  39. LAMOTRIGINE. [Concomitant]
     Active Substance: LAMOTRIGINE
  40. ORPHENADRINE [Concomitant]
     Active Substance: ORPHENADRINE
  41. ERGOCALCIFEROL. [Concomitant]
     Active Substance: ERGOCALCIFEROL
  42. LIPITOR [Concomitant]
     Active Substance: ATORVASTATIN CALCIUM
  43. CHLORAL HYDRATE [Concomitant]
     Active Substance: CHLORAL HYDRATE
  44. TRANSDERM SCOP [Concomitant]
     Active Substance: SCOPOLAMINE
  45. NORVASC [Concomitant]
     Active Substance: AMLODIPINE BESYLATE
  46. RESTASIS [Concomitant]
     Active Substance: CYCLOSPORINE
  47. GABAPENTIN. [Concomitant]
     Active Substance: GABAPENTIN
  48. FISH OIL [Concomitant]
     Active Substance: FISH OIL
  49. PREVIDENT 5000 PLUS [Concomitant]
  50. ONDANSETRON [Concomitant]
     Active Substance: ONDANSETRON

REACTIONS (6)
  - Raynaud^s phenomenon [Not Recovered/Not Resolved]
  - Sleep disorder [Recovered/Resolved]
  - Fatigue [Recovered/Resolved]
  - Rheumatoid arthritis [Recovered/Resolved]
  - Sjogren^s syndrome [Not Recovered/Not Resolved]
  - Malaise [Recovered/Resolved]

NARRATIVE: CASE EVENT DATE: 2014
